FAERS Safety Report 13742610 (Version 1)
Quarter: 2017Q3

REPORT INFORMATION
  Report Type: Spontaneous
  Country: FR (occurrence: FR)
  Receive Date: 20170711
  Receipt Date: 20170711
  Transmission Date: 20171127
  Serious: Yes (Hospitalization)
  Sender: FDA-Public Use
  Company Number: FR-ABBVIE-17P-056-2034331-00

PATIENT
  Age: 5 Year
  Sex: Male

DRUGS (5)
  1. CANNABIDIOL [Suspect]
     Active Substance: CANNABIDIOL
     Route: 065
     Dates: start: 20170619, end: 20170619
  2. DEPAKINE [Suspect]
     Active Substance: VALPROATE SODIUM
     Route: 042
     Dates: start: 20170615, end: 20170619
  3. CANNABIDIOL [Suspect]
     Active Substance: CANNABIDIOL
     Indication: STATUS EPILEPTICUS
     Route: 065
     Dates: start: 20170617, end: 20170618
  4. DEPAKINE [Suspect]
     Active Substance: VALPROATE SODIUM
     Indication: STATUS EPILEPTICUS
     Route: 042
     Dates: start: 20170614, end: 20170614
  5. VIMPAT [Suspect]
     Active Substance: LACOSAMIDE
     Indication: STATUS EPILEPTICUS
     Route: 065
     Dates: start: 20170616, end: 20170619

REACTIONS (2)
  - Hyperammonaemia [Recovering/Resolving]
  - Metabolic acidosis [Recovering/Resolving]

NARRATIVE: CASE EVENT DATE: 20170618
